FAERS Safety Report 20025884 (Version 1)
Quarter: 2021Q4

REPORT INFORMATION
  Report Type: Spontaneous
  Country: US (occurrence: US)
  Receive Date: 20211102
  Receipt Date: 20211102
  Transmission Date: 20220304
  Serious: Yes (Other)
  Sender: FDA-Public Use
  Company Number: US-MYLANLABS-2021M1079434

PATIENT
  Age: 37 Year
  Sex: Male

DRUGS (5)
  1. OLANZAPINE [Interacting]
     Active Substance: OLANZAPINE
     Indication: Schizoaffective disorder
     Dosage: INITIAL DOSE NOT STATED; ORAL DISINTEGRATING TABLET
     Route: 048
  2. OLANZAPINE [Interacting]
     Active Substance: OLANZAPINE
     Indication: Drug use disorder
     Dosage: 10 MILLIGRAM, BID (ORAL DISINTEGRATING TABLET)
     Route: 048
  3. BUPRENORPHINE [Suspect]
     Active Substance: BUPRENORPHINE
     Indication: Schizoaffective disorder
     Dosage: INITIAL DOSE NOT STATED
     Route: 065
     Dates: start: 2020
  4. BUPRENORPHINE [Suspect]
     Active Substance: BUPRENORPHINE
     Indication: Drug use disorder
     Dosage: 12 MILLIGRAM, QD
     Route: 065
     Dates: start: 2020
  5. HERBALS\PLANTAGO OVATA LEAF [Interacting]
     Active Substance: HERBALS\PLANTAGO OVATA LEAF
     Indication: Constipation
     Dosage: 3 GRAM, BID
     Route: 065

REACTIONS (3)
  - Drug interaction [Recovered/Resolved]
  - Drug ineffective [Recovered/Resolved]
  - Constipation [Unknown]
